FAERS Safety Report 18792868 (Version 2)
Quarter: 2021Q1

REPORT INFORMATION
  Report Type: Other
  Country: NL (occurrence: FR)
  Receive Date: 20210127
  Receipt Date: 20210128
  Transmission Date: 20210419
  Serious: Yes (Hospitalization, Other)
  Sender: FDA-Public Use
  Company Number: FR-ASTELLAS-2014US002105

PATIENT
  Age: 18 Year
  Sex: Female

DRUGS (4)
  1. POSACONAZOLE [Concomitant]
     Active Substance: POSACONAZOLE
     Indication: PRODUCT USED FOR UNKNOWN INDICATION
     Dosage: UNK UNK, UNKNOWN FREQ.
     Route: 065
  2. CICLOSPORIN [Suspect]
     Active Substance: CYCLOSPORINE
     Indication: FUSARIUM INFECTION
     Dosage: UNK, UNKNOWN FREQ.
     Route: 065
  3. MYCOPHENOLATE MOFETIL. [Concomitant]
     Active Substance: MYCOPHENOLATE MOFETIL
     Indication: PRODUCT USED FOR UNKNOWN INDICATION
     Dosage: UNK UNK, UNKNOWN FREQ.
     Route: 065
  4. AMPHOTERICIN B, LIPOSOME [Suspect]
     Active Substance: AMPHOTERICIN B
     Indication: FUSARIUM INFECTION
     Route: 065

REACTIONS (14)
  - Pyrexia [Recovered/Resolved]
  - Bone marrow failure [Unknown]
  - Fusarium infection [Recovered/Resolved]
  - Meningitis aseptic [Unknown]
  - Necrosis [Recovering/Resolving]
  - Blood stem cell transplant failure [Unknown]
  - Toxoplasmosis [Recovered/Resolved]
  - Nodule [Recovering/Resolving]
  - Pustule [Unknown]
  - Hypokalaemia [Recovered/Resolved]
  - Erythema [Unknown]
  - Seizure [Unknown]
  - Acute kidney injury [Recovered/Resolved]
  - Neutropenia [Unknown]
